FAERS Safety Report 11539270 (Version 13)
Quarter: 2022Q1

REPORT INFORMATION
  Report Type: Spontaneous
  Country: US (occurrence: US)
  Receive Date: 20150923
  Receipt Date: 20220124
  Transmission Date: 20220423
  Serious: Yes (Other)
  Sender: FDA-Public Use
  Company Number: US-PFIZER INC-2015311118

PATIENT
  Age: 62 Year
  Sex: Female

DRUGS (7)
  1. LYRICA [Suspect]
     Active Substance: PREGABALIN
     Indication: Fibromyalgia
     Dosage: 150 MG, TWICE DAILY
     Route: 048
  2. LYRICA [Suspect]
     Active Substance: PREGABALIN
     Indication: Osteoarthritis
     Dosage: 150 MG, THRICE A DAY
     Route: 048
  3. LYRICA [Suspect]
     Active Substance: PREGABALIN
     Indication: Osteoporosis
     Dosage: 150 MG, THRICE A DAY
     Route: 048
  4. LYRICA [Suspect]
     Active Substance: PREGABALIN
     Indication: Neuralgia
  5. LYRICA [Suspect]
     Active Substance: PREGABALIN
     Indication: Neuralgia
  6. LYRICA [Suspect]
     Active Substance: PREGABALIN
     Indication: Neck pain
  7. LYRICA [Suspect]
     Active Substance: PREGABALIN
     Indication: Nerve injury

REACTIONS (8)
  - Rib fracture [Unknown]
  - Sternal fracture [Unknown]
  - Contusion [Unknown]
  - Road traffic accident [Unknown]
  - Nasopharyngitis [Unknown]
  - Nervous system disorder [Not Recovered/Not Resolved]
  - Joint swelling [Unknown]
  - Pain in extremity [Unknown]

NARRATIVE: CASE EVENT DATE: 20181130
